FAERS Safety Report 24773977 (Version 2)
Quarter: 2025Q1

REPORT INFORMATION
  Report Type: Spontaneous
  Country: US (occurrence: US)
  Receive Date: 20241225
  Receipt Date: 20250109
  Transmission Date: 20250409
  Serious: No
  Sender: SANOFI AVENTIS
  Company Number: US-SA-2024SA378378

PATIENT
  Sex: Female

DRUGS (26)
  1. AUBAGIO [Suspect]
     Active Substance: TERIFLUNOMIDE
     Indication: Multiple sclerosis
  2. ADVAIR HFA [Concomitant]
     Active Substance: FLUTICASONE PROPIONATE\SALMETEROL XINAFOATE
  3. LEVALBUTEROL TARTRATE [Concomitant]
     Active Substance: LEVALBUTEROL TARTRATE
  4. BIOTIN [Concomitant]
     Active Substance: BIOTIN
  5. VITAMIN D3 [Concomitant]
     Active Substance: CHOLECALCIFEROL
  6. DUONEB [Concomitant]
     Active Substance: ALBUTEROL SULFATE\IPRATROPIUM BROMIDE
  7. EPINEPHRINE [Concomitant]
     Active Substance: EPINEPHRINE
  8. FOLIC ACID [Concomitant]
     Active Substance: FOLIC ACID
  9. IRON [Concomitant]
     Active Substance: IRON
  10. METHOTREXATE [Concomitant]
     Active Substance: METHOTREXATE
  11. METOPROLOL [Concomitant]
     Active Substance: METOPROLOL
  12. LOSARTAN [Concomitant]
     Active Substance: LOSARTAN
  13. NICOTINE [Concomitant]
     Active Substance: NICOTINE
  14. PREDNISONE [Concomitant]
     Active Substance: PREDNISONE
  15. ROSUVASTATIN [Concomitant]
     Active Substance: ROSUVASTATIN
  16. SYNTHROID [Concomitant]
     Active Substance: LEVOTHYROXINE SODIUM
  17. BUSPAR [Concomitant]
     Active Substance: BUSPIRONE HYDROCHLORIDE
  18. TROSPIUM CHLORIDE [Concomitant]
     Active Substance: TROSPIUM CHLORIDE
  19. ESTRADIOL [Concomitant]
     Active Substance: ESTRADIOL
  20. TYLENOL [Concomitant]
     Active Substance: ACETAMINOPHEN
  21. NAPROXEN SODIUM [Concomitant]
     Active Substance: NAPROXEN SODIUM
  22. AVONEX [Concomitant]
     Active Substance: INTERFERON BETA-1A
  23. COPAXONE [Concomitant]
     Active Substance: GLATIRAMER ACETATE
  24. TECFIDERA [Concomitant]
     Active Substance: DIMETHYL FUMARATE
  25. GILENYA [Concomitant]
     Active Substance: FINGOLIMOD HYDROCHLORIDE
  26. BLACK COHOSH [Concomitant]
     Active Substance: BLACK COHOSH

REACTIONS (2)
  - Drug hypersensitivity [Unknown]
  - Oral mucosal blistering [Unknown]
